FAERS Safety Report 6490548-0 (Version None)
Quarter: 2009Q4

REPORT INFORMATION
  Report Type: 
  Country: None (occurrence: None)
  Receive Date: 20091211
  Receipt Date: 20091201
  Transmission Date: 20100525
  Serious: Yes (Other)
  Sender: FDA-Public Use
  Company Number: JP-PFIZER INC-2009305976

PATIENT
  Age: 85 Year
  Sex: Male

DRUGS (2)
  1. HALCION [Suspect]
     Dosage: 0.25 MG, DAILY
     Route: 048
  2. RISPERDAL [Concomitant]

REACTIONS (2)
  - AGGRESSION [None]
  - DELIRIUM [None]
